FAERS Safety Report 7885558-2 (Version None)
Quarter: 2011Q4

REPORT INFORMATION
  Report Type: 
  Country: None (occurrence: None)
  Receive Date: 20111102
  Receipt Date: 20110623
  Transmission Date: 20120403
  Serious: No
  Sender: FDA-Public Use
  Company Number: US-AMGEN-USASP2011032409

PATIENT
  Sex: Male

DRUGS (3)
  1. METHOTREXATE [Concomitant]
  2. ERYTHROMYCIN [Concomitant]
     Dosage: 250 MG, UNK
  3. ENBREL [Suspect]
     Indication: RHEUMATOID ARTHRITIS
     Dosage: 50 MG, QWK
     Dates: start: 20110401

REACTIONS (10)
  - VISION BLURRED [None]
  - RESPIRATORY TRACT CONGESTION [None]
  - NASOPHARYNGITIS [None]
  - DYSPNOEA [None]
  - FATIGUE [None]
  - COUGH [None]
  - OCULAR HYPERAEMIA [None]
  - CHEST PAIN [None]
  - HYPERHIDROSIS [None]
  - SEBORRHOEA [None]
